FAERS Safety Report 9547980 (Version 2)
Quarter: 2013Q3

REPORT INFORMATION
  Report Type: Spontaneous
  Country: US (occurrence: US)
  Receive Date: 20130924
  Receipt Date: 20130924
  Transmission Date: 20140515
  Serious: No
  Sender: FDA-Public Use
  Company Number: US-PURDUE-USA-2009-0037137

PATIENT
  Sex: Female

DRUGS (3)
  1. MORPHINE SULFATE (SIMILAR TO NDA 19-516) [Suspect]
     Indication: PRODUCT USED FOR UNKNOWN INDICATION
     Dosage: UNK, UNK
  2. ATIVAN [Concomitant]
     Dosage: 2 MG, UNK
  3. CATAPRES                           /00171101/ [Concomitant]
     Indication: HYPERTENSION

REACTIONS (2)
  - Drug hypersensitivity [Unknown]
  - Oedema [Unknown]
